FAERS Safety Report 10216003 (Version 1)
Quarter: 2014Q2

REPORT INFORMATION
  Report Type: Spontaneous
  Country: NL (occurrence: None)
  Receive Date: 20140602
  Receipt Date: 20140602
  Transmission Date: 20141212
  Serious: Yes (Other)
  Sender: FDA-Public Use
  Company Number: SYM-2013-05192

PATIENT
  Age: 70 Year
  Sex: Female

DRUGS (4)
  1. TIMOPTOL XE (TIMOLOL MALEATE) (EYE DROPS, SOLUTION) (TIMOLOL MALEATE) [Suspect]
     Indication: GLAUCOMA
     Dosage: 1 DROP DAILY IN BOTH EYES
     Route: 047
     Dates: start: 20130313, end: 20130617
  2. TEGRETOL (CARBAMAZEPINE) UNKNOWN [Concomitant]
  3. PANTOZOL (PANTOPRAZOLE SODIUM SESQUIHYDRATE) (PANTOPRAZOLE SODIUM SESQUIHYDRATE) [Concomitant]
  4. CALCICHEW (CALCIUM CARBONATE) (CALCIUM CARBONATE) [Concomitant]

REACTIONS (4)
  - Alopecia [None]
  - Hair texture abnormal [None]
  - Dizziness [None]
  - Pain in extremity [None]
